FAERS Safety Report 7387374-7 (Version None)
Quarter: 2011Q1

REPORT INFORMATION
  Report Type: 
  Country: None (occurrence: None)
  Receive Date: 20110331
  Receipt Date: 20110318
  Transmission Date: 20110831
  Serious: Yes (Death, Other)
  Sender: FDA-Public Use
  Company Number: PHHY2011JP19611

PATIENT
  Age: 11 Year
  Sex: Male

DRUGS (2)
  1. GLEEVEC [Suspect]
     Indication: ACUTE LYMPHOCYTIC LEUKAEMIA
     Route: 048
  2. HYPER-CVAD [Concomitant]
     Indication: ACUTE LYMPHOCYTIC LEUKAEMIA

REACTIONS (10)
  - THROMBOTIC MICROANGIOPATHY [None]
  - HISTIOCYTOSIS HAEMATOPHAGIC [None]
  - RENAL DISORDER [None]
  - RESPIRATORY SYNCYTIAL VIRUS INFECTION [None]
  - ACUTE LYMPHOCYTIC LEUKAEMIA [None]
  - ACUTE LYMPHOCYTIC LEUKAEMIA RECURRENT [None]
  - RENAL IMPAIRMENT [None]
  - COUGH [None]
  - NEOPLASM MALIGNANT [None]
  - PYREXIA [None]
